FAERS Safety Report 7183339-9 (Version None)
Quarter: 2010Q4

REPORT INFORMATION
  Report Type: 
  Country: None (occurrence: None)
  Receive Date: 20101222
  Receipt Date: 20101014
  Transmission Date: 20110411
  Serious: No
  Sender: FDA-Public Use
  Company Number: US-MYLANLABS-2010S1019133

PATIENT
  Age: 86 Year
  Sex: Female

DRUGS (10)
  1. NIFEDIPINE [Suspect]
     Indication: BLOOD PRESSURE INCREASED
     Route: 048
     Dates: start: 20101011, end: 20101013
  2. POTASSIUM [Concomitant]
  3. PLAVIX [Concomitant]
  4. LISINOPRIL [Concomitant]
  5. BYSTOLIC [Concomitant]
  6. HYDRALAZINE [Concomitant]
  7. ISOSORBIDE DINITRATE [Concomitant]
  8. INSULIN [Concomitant]
  9. CRESTOR [Concomitant]
  10. FUROSEMIDE [Concomitant]

REACTIONS (2)
  - DIZZINESS [None]
  - FALL [None]
